FAERS Safety Report 20720410 (Version 1)
Quarter: 2022Q2

REPORT INFORMATION
  Report Type: Spontaneous
  Country: US (occurrence: US)
  Receive Date: 20220418
  Receipt Date: 20220418
  Transmission Date: 20220721
  Serious: No
  Sender: FDA-Public Use
  Company Number: US-PFIZER INC-202101303019

PATIENT
  Age: 61 Year
  Sex: Female
  Weight: 85.261 kg

DRUGS (2)
  1. IBRANCE [Suspect]
     Active Substance: PALBOCICLIB
     Indication: Breast cancer female
     Dosage: 125 MG, CYCLIC, (DAILY X 21 DAYS)
     Route: 048
     Dates: start: 20210909
  2. VITAMIN D3 [Concomitant]
     Active Substance: CHOLECALCIFEROL
     Dosage: UNK

REACTIONS (3)
  - Stomatitis [Recovered/Resolved]
  - Throat irritation [Unknown]
  - Dysphagia [Unknown]
